FAERS Safety Report 11080919 (Version 1)
Quarter: 2015Q2

REPORT INFORMATION
  Report Type: Spontaneous
  Country: US (occurrence: None)
  Receive Date: 20150430
  Receipt Date: 20150430
  Transmission Date: 20150821
  Serious: No
  Sender: FDA-Public Use
  Company Number: None

PATIENT
  Age: 28 Year
  Sex: Female
  Weight: 88.45 kg

DRUGS (9)
  1. BENADRYL [Concomitant]
     Active Substance: DIPHENHYDRAMINE HYDROCHLORIDE
  2. WELLBUTRIN [Concomitant]
     Active Substance: BUPROPION HYDROCHLORIDE
  3. CITALOPRAM [Concomitant]
     Active Substance: CITALOPRAM HYDROBROMIDE
  4. FOLIC ACID. [Concomitant]
     Active Substance: FOLIC ACID
  5. MICROGESTIN FE [Suspect]
     Active Substance: ETHINYL ESTRADIOL\FERROUS FUMARATE\NORETHINDRONE ACETATE
     Indication: CONTRACEPTION
     Dosage: 1.5/30
     Route: 048
     Dates: start: 20150329, end: 20150408
  6. VITAMIN B12 [Concomitant]
     Active Substance: CYANOCOBALAMIN
  7. TYLENOL PM [Concomitant]
     Active Substance: ACETAMINOPHEN\DIPHENHYDRAMINE
  8. VITAMIN D [Concomitant]
     Active Substance: CHOLECALCIFEROL
  9. STRATTERA [Concomitant]
     Active Substance: ATOMOXETINE HYDROCHLORIDE

REACTIONS (6)
  - Product quality issue [None]
  - Product substitution issue [None]
  - Abdominal pain upper [None]
  - Diarrhoea [None]
  - Abdominal discomfort [None]
  - Nausea [None]

NARRATIVE: CASE EVENT DATE: 20150401
